FAERS Safety Report 5132621-5 (Version None)
Quarter: 2006Q4

REPORT INFORMATION
  Report Type: 
  Country: None (occurrence: None)
  Receive Date: 20061023
  Receipt Date: 20061013
  Transmission Date: 20070319
  Serious: Yes (Hospitalization)
  Sender: FDA-Public Use
  Company Number: NO-ROCHE-467202

PATIENT
  Age: 41 Year
  Sex: Female

DRUGS (6)
  1. PEGASYS [Suspect]
     Route: 058
     Dates: start: 20060309, end: 20060516
  2. COPEGUS [Suspect]
     Route: 048
     Dates: start: 20060309, end: 20060530
  3. LEPONEX [Suspect]
     Indication: SCHIZOPHRENIA
     Route: 048
     Dates: start: 20010615, end: 20060615
  4. LEVONORGESTREL AND ETHINYL ESTRADIOL [Concomitant]
     Indication: CONTRACEPTION
     Route: 048
  5. GLUCOPHAGE [Concomitant]
     Indication: DIABETES MELLITUS
     Route: 048
     Dates: start: 20050615
  6. AMARYL [Concomitant]
     Indication: DIABETES MELLITUS
     Route: 048
     Dates: start: 20050615

REACTIONS (5)
  - DRUG INTERACTION [None]
  - GRANULOCYTOPENIA [None]
  - INFECTION [None]
  - NEUTROPENIC SEPSIS [None]
  - SEPSIS [None]
